FAERS Safety Report 7449986-1 (Version None)
Quarter: 2011Q2

REPORT INFORMATION
  Report Type: 
  Country: None (occurrence: None)
  Receive Date: 20110502
  Receipt Date: 20110310
  Transmission Date: 20111010
  Serious: Yes (Death, Life-Threatening, Hospitalization)
  Sender: FDA-Public Use
  Company Number: DE-BAYER-2011-021863

PATIENT
  Age: 69 Year
  Sex: Male

DRUGS (9)
  1. ASPIRIN [Concomitant]
     Dosage: UNK
     Dates: start: 20070101
  2. FALITHROM [Concomitant]
     Dosage: UNK
     Dates: start: 20091201
  3. DISALUNIL [Concomitant]
     Dosage: UNK
     Dates: start: 20100101
  4. SORAFENIB (RAF KINASE INHIBITOR) [Suspect]
     Indication: HEPATIC NEOPLASM MALIGNANT
     Dosage: 200 MG, BID
     Route: 048
     Dates: start: 20100618, end: 20101125
  5. NOVAMINSULFON [Concomitant]
     Dosage: UNK
     Dates: start: 20100101
  6. RAMIPRIL [Concomitant]
     Dosage: UNK
     Dates: start: 20070101
  7. DIOVAN [Concomitant]
     Dosage: UNK
     Dates: start: 20080101
  8. DIGITOXIN TAB [Concomitant]
     Dosage: UNK
     Dates: start: 20091001
  9. METOHEXAL [Concomitant]
     Dosage: UNK

REACTIONS (2)
  - PELVIC VENOUS THROMBOSIS [None]
  - HAEMORRHOIDAL HAEMORRHAGE [None]
